FAERS Safety Report 19971883 (Version 1)
Quarter: 2021Q4

REPORT INFORMATION
  Report Type: Spontaneous
  Country: US (occurrence: US)
  Receive Date: 20211019
  Receipt Date: 20211019
  Transmission Date: 20220303
  Serious: No
  Sender: FDA-Public Use
  Company Number: US-BAYER-2021A225288

PATIENT
  Age: 45 Year
  Sex: Male

DRUGS (1)
  1. BETASERON [Suspect]
     Active Substance: INTERFERON BETA-1B
     Dates: start: 20201201, end: 20211004

REACTIONS (5)
  - Nausea [None]
  - Cold sweat [None]
  - Frequent bowel movements [None]
  - Abdominal distension [None]
  - Abdominal discomfort [None]

NARRATIVE: CASE EVENT DATE: 20211004
